FAERS Safety Report 5487684-4 (Version None)
Quarter: 2007Q4

REPORT INFORMATION
  Report Type: 
  Country: None (occurrence: None)
  Receive Date: 20071017
  Receipt Date: 20071008
  Transmission Date: 20080405
  Serious: Yes (Other)
  Sender: FDA-Public Use
  Company Number: PHBS2007NZ16857

PATIENT
  Sex: Female

DRUGS (2)
  1. CLOZARIL [Suspect]
     Indication: DRUG ADMINISTRATION ERROR
     Dosage: 600 MG, ONCE/SINGLE
  2. CHLORPROMAZINE [Concomitant]
     Dosage: 600 MG /D

REACTIONS (2)
  - CIRCULATORY COLLAPSE [None]
  - WRONG DRUG ADMINISTERED [None]
